FAERS Safety Report 12355025 (Version 1)
Quarter: 2016Q2

REPORT INFORMATION
  Report Type: Spontaneous
  Country: CA (occurrence: CA)
  Receive Date: 20160511
  Receipt Date: 20160511
  Transmission Date: 20160815
  Serious: Yes (Death)
  Sender: FDA-Public Use
  Company Number: CA-009507513-1605CAN005011

PATIENT
  Age: 73 Year
  Sex: Male

DRUGS (1)
  1. ORGARAN [Suspect]
     Active Substance: DANAPAROID SODIUM
     Indication: PRODUCT USED FOR UNKNOWN INDICATION
     Dosage: 750 ANTI-XA UNIT/ AMP 1250 UNIT/ ML
     Route: 042

REACTIONS (4)
  - Acute kidney injury [Fatal]
  - Respiratory failure [Fatal]
  - Shock [Fatal]
  - Acidosis [Fatal]
